FAERS Safety Report 23453541 (Version 2)
Quarter: 2024Q1

REPORT INFORMATION
  Report Type: Spontaneous
  Country: US (occurrence: US)
  Receive Date: 20240129
  Receipt Date: 20240319
  Transmission Date: 20240410
  Serious: No
  Sender: FDA-Public Use
  Company Number: US-KARYOPHARM-2024KPT000067

PATIENT

DRUGS (12)
  1. XPOVIO [Suspect]
     Active Substance: SELINEXOR
     Indication: Plasma cell myeloma
     Dosage: 80 MG, 2X/WEEK ON DAY 1, 3, 8, 10, 15, 17, 22 AND 24 OF EACH 28 DAY CYCLE
     Route: 048
     Dates: start: 20240115, end: 202402
  2. DEXAMETHASONE [Concomitant]
     Active Substance: DEXAMETHASONE
  3. ELIQUIS [Concomitant]
     Active Substance: APIXABAN
  4. FELODIPINE [Concomitant]
     Active Substance: FELODIPINE
  5. GABAPENTIN [Concomitant]
     Active Substance: GABAPENTIN
  6. ISOSORBIDE [Concomitant]
     Active Substance: ISOSORBIDE
  7. LIPITOR [Concomitant]
     Active Substance: ATORVASTATIN CALCIUM
  8. METOPROLOL [Concomitant]
     Active Substance: METOPROLOL
  9. MIRALAX [Concomitant]
     Active Substance: POLYETHYLENE GLYCOL 3350
  10. PLAVIX [Concomitant]
     Active Substance: CLOPIDOGREL BISULFATE
  11. ZOFRAN [Concomitant]
     Active Substance: ONDANSETRON HYDROCHLORIDE
  12. ZYPREXA [Concomitant]
     Active Substance: OLANZAPINE

REACTIONS (4)
  - Dysgeusia [Unknown]
  - Nausea [Unknown]
  - Decreased appetite [Unknown]
  - Weight decreased [Unknown]

NARRATIVE: CASE EVENT DATE: 20240101
